FAERS Safety Report 5498690-8 (Version None)
Quarter: 2007Q4

REPORT INFORMATION
  Report Type: 
  Country: None (occurrence: None)
  Receive Date: 20071026
  Receipt Date: 20071016
  Transmission Date: 20080405
  Serious: Yes (Hospitalization)
  Sender: FDA-Public Use
  Company Number: FR-NOVOPROD-268595

PATIENT
  Age: 64 Year
  Sex: Male

DRUGS (3)
  1. GLUCAGEN [Suspect]
  2. NOVORAPID [Concomitant]
     Indication: DRUG USE FOR UNKNOWN INDICATION
  3. LANTUS [Concomitant]

REACTIONS (2)
  - DEVICE FAILURE [None]
  - INJECTION SITE VESICLES [None]
